FAERS Safety Report 6251864-0 (Version None)
Quarter: 2009Q2

REPORT INFORMATION
  Report Type: 
  Country: None (occurrence: None)
  Receive Date: 20090626
  Receipt Date: 20080812
  Transmission Date: 20091009
  Serious: Yes (Hospitalization)
  Sender: FDA-Public Use
  Company Number: 580557

PATIENT
  Age: 62 Year
  Sex: Female

DRUGS (2)
  1. XELODA [Suspect]
     Indication: DRUG USE FOR UNKNOWN INDICATION
     Dosage: ORAL
     Route: 048
     Dates: start: 20080701
  2. TYKERB [Suspect]
     Indication: DRUG USE FOR UNKNOWN INDICATION
     Dosage: 4 DOSE FORM DAILY ORAL
     Route: 048
     Dates: start: 20080701

REACTIONS (3)
  - DIARRHOEA [None]
  - NAUSEA [None]
  - PAIN [None]
